FAERS Safety Report 9384570 (Version 2)
Quarter: 2013Q3

REPORT INFORMATION
  Report Type: Spontaneous
  Country: IN (occurrence: None)
  Receive Date: 20130628
  Receipt Date: 20130705
  Transmission Date: 20140515
  Serious: Yes (Hospitalization)
  Sender: FDA-Public Use
  Company Number: SYM-2013-05019

PATIENT
  Age: 31 Year
  Sex: Male

DRUGS (3)
  1. METRONIDAZOLE [Suspect]
     Indication: HEPATIC AMOEBIASIS
     Dates: start: 201109
  2. ORNIDAZOLE (ORNIDAZOLE) (ORNIDAZOLE) [Concomitant]
  3. DILOXANIDE FUROATE (DILOXANIDE FUROATE) (DILOXANIDE FUROATE) [Concomitant]

REACTIONS (8)
  - Cerebellar ataxia [None]
  - Convulsion [None]
  - Neuropathy peripheral [None]
  - Grand mal convulsion [None]
  - Clumsiness [None]
  - Cerebellar syndrome [None]
  - Acute disseminated encephalomyelitis [None]
  - Diarrhoea [None]
